FAERS Safety Report 9787281 (Version 1)
Quarter: 2013Q4

REPORT INFORMATION
  Report Type: Report from Study
  Country: US (occurrence: US)
  Receive Date: 20131230
  Receipt Date: 20131230
  Transmission Date: 20140711
  Serious: Yes (Other)
  Sender: FDA-Public Use
  Company Number: US-ROCHE-1323378

PATIENT
  Sex: Female
  Weight: 35.1 kg

DRUGS (1)
  1. NUTROPIN [Suspect]
     Indication: TURNER^S SYNDROME
     Route: 058
     Dates: start: 200508

REACTIONS (3)
  - Developmental delay [Unknown]
  - Growth retardation [Unknown]
  - Melanocytic naevus [Unknown]
